FAERS Safety Report 24626692 (Version 1)
Quarter: 2024Q4

REPORT INFORMATION
  Report Type: Spontaneous
  Country: GB (occurrence: GB)
  Receive Date: 20241115
  Receipt Date: 20241115
  Transmission Date: 20250114
  Serious: Yes (Hospitalization, Other)
  Sender: PFIZER
  Company Number: None

PATIENT
  Age: 16 Year
  Sex: Male

DRUGS (1)
  1. SULFASALAZINE [Suspect]
     Active Substance: SULFASALAZINE
     Indication: Crohn^s disease
     Dosage: UNK

REACTIONS (4)
  - Rash [Unknown]
  - Rash vesicular [Unknown]
  - Genital rash [Unknown]
  - Stevens-Johnson syndrome [Unknown]
